FAERS Safety Report 4784914-9 (Version None)
Quarter: 2005Q3

REPORT INFORMATION
  Report Type: 
  Country: None (occurrence: None)
  Receive Date: 20050928
  Receipt Date: 20050915
  Transmission Date: 20060218
  Serious: Yes (Congenital Anomaly, Other)
  Sender: FDA-Public Use
  Company Number: 2005112352

PATIENT
  Weight: 2.7216 kg

DRUGS (8)
  1. DEPO-PROVERA [Suspect]
     Indication: CONTRACEPTION
     Dosage: 150 MG (150 MG, 1ST INJECTION/12 WEEKS), INTRAMUSCULAR
     Route: 030
     Dates: start: 20020212, end: 20020212
  2. DEPO-PROVERA [Suspect]
     Indication: CONTRACEPTION
     Dosage: 150 MG (150 MG, 1ST INJECTION/12 WEEKS), INTRAMUSCULAR
     Route: 030
     Dates: start: 20040601, end: 20040601
  3. DEPO-PROVERA [Suspect]
     Indication: CONTRACEPTION
     Dosage: 150 MG (150 MG, 1ST INJECTION/12 WEEKS), INTRAMUSCULAR
     Route: 030
     Dates: start: 20040824, end: 20040824
  4. DEPO-PROVERA [Suspect]
     Indication: CONTRACEPTION
     Dosage: 150 MG (150 MG, 1ST INJECTION/12 WEEKS), INTRAMUSCULAR
     Route: 030
     Dates: start: 20041116, end: 20041116
  5. DEPO-PROVERA [Suspect]
     Indication: CONTRACEPTION
     Dosage: 150 MG (150 MG, 1ST INJECTION/12 WEEKS), INTRAMUSCULAR
     Route: 030
     Dates: start: 20050208, end: 20050208
  6. DEPO-PROVERA [Suspect]
  7. DEPO-PROVERA [Concomitant]
  8. DEPO-PROVERA [Concomitant]

REACTIONS (7)
  - ANOMALY OF EXTERNAL EAR CONGENITAL [None]
  - CAESAREAN SECTION [None]
  - CONGENITAL ANOMALY [None]
  - CONGENITAL JAW MALFORMATION [None]
  - CONGENITAL ORAL MALFORMATION [None]
  - DRUG EXPOSURE DURING PREGNANCY [None]
  - MICROTIA [None]
